FAERS Safety Report 10392750 (Version 3)
Quarter: 2015Q1

REPORT INFORMATION
  Report Type: Report from Study
  Country: CN (occurrence: CN)
  Receive Date: 20140819
  Receipt Date: 20150212
  Transmission Date: 20150720
  Serious: Yes (Hospitalization)
  Sender: FDA-Public Use
  Company Number: CN-ROCHE-1447983

PATIENT
  Age: 56 Year
  Sex: Female
  Weight: 52 kg

DRUGS (18)
  1. TRASTUZUMAB [Suspect]
     Active Substance: TRASTUZUMAB
     Dosage: MAINTENANCE DOSE?LAST DOSE PRIOR TO AE ON 28/MAY/2014
     Route: 042
     Dates: end: 20140528
  2. CYCLOPHOSPHAMIDE. [Suspect]
     Active Substance: CYCLOPHOSPHAMIDE
     Indication: HER-2 POSITIVE BREAST CANCER
     Dosage: LAST DOSE PRIOR TO AE ON 04/JUL/2013
     Route: 042
     Dates: start: 20130502
  3. EPIRUBICIN [Suspect]
     Active Substance: EPIRUBICIN
     Indication: HER-2 POSITIVE BREAST CANCER
     Dosage: LAST DOSE PRIOR TO AE ON 04/JUL/2013
     Route: 042
     Dates: start: 20130502
  4. DOCETAXEL. [Suspect]
     Active Substance: DOCETAXEL
     Indication: HER-2 POSITIVE BREAST CANCER
     Route: 042
  5. ESTAZOLAM. [Concomitant]
     Active Substance: ESTAZOLAM
     Route: 065
     Dates: start: 201409
  6. PANTOPRAZOLE [Concomitant]
     Active Substance: PANTOPRAZOLE SODIUM
     Route: 065
     Dates: start: 201411, end: 201412
  7. GLYCYRRHIZA [Concomitant]
     Active Substance: LICORICE
  8. TRASTUZUMAB [Suspect]
     Active Substance: TRASTUZUMAB
     Indication: HER-2 POSITIVE BREAST CANCER
     Dosage: LOADING DOSE
     Route: 042
     Dates: start: 20130725
  9. LORATADINE. [Concomitant]
     Active Substance: LORATADINE
     Route: 065
     Dates: start: 201409, end: 201411
  10. PLACEBO [Suspect]
     Active Substance: UNSPECIFIED INGREDIENT
     Indication: HER-2 POSITIVE BREAST CANCER
     Dosage: LOADING DOSE
     Route: 042
     Dates: start: 20130725
  11. NORADRENALINE BITARTRATE [Concomitant]
     Route: 065
     Dates: start: 201408, end: 201409
  12. POTASSIUM CHLORIDE. [Concomitant]
     Active Substance: POTASSIUM CHLORIDE
     Route: 065
     Dates: start: 201409, end: 201412
  13. RABEPRAZOLE SODIUM. [Concomitant]
     Active Substance: RABEPRAZOLE SODIUM
     Route: 065
     Dates: start: 201411, end: 20141219
  14. LEVOFLOXACINE [Concomitant]
     Active Substance: LEVOFLOXACIN
     Route: 065
     Dates: start: 201411, end: 201412
  15. OMEPRAZOLE SODIUM [Concomitant]
     Active Substance: OMEPRAZOLE SODIUM
     Route: 065
     Dates: start: 20140825, end: 201409
  16. NIFEDIPINE EXTENDED RELEASE [Concomitant]
     Active Substance: NIFEDIPINE
     Route: 065
     Dates: start: 20140829, end: 201409
  17. PLACEBO [Suspect]
     Active Substance: UNSPECIFIED INGREDIENT
     Dosage: MAINTENANCE DOSE?LAST DOSE PRIOR TO AE ON 28/MAY/2014
     Route: 042
     Dates: end: 20140528
  18. ALFACALCIDOL [Concomitant]
     Active Substance: ALFACALCIDOL
     Route: 065
     Dates: start: 20140825

REACTIONS (1)
  - Bone marrow failure [Recovered/Resolved with Sequelae]

NARRATIVE: CASE EVENT DATE: 20140603
